FAERS Safety Report 15263653 (Version 1)
Quarter: 2018Q3

REPORT INFORMATION
  Report Type: Spontaneous
  Country: US (occurrence: US)
  Receive Date: 20180810
  Receipt Date: 20180810
  Transmission Date: 20181010
  Serious: No
  Sender: FDA-Public Use
  Company Number: US-BAYER-2018-149625

PATIENT

DRUGS (2)
  1. MIRALAX [Suspect]
     Active Substance: POLYETHYLENE GLYCOL 3350
     Route: 065
  2. ANTIBIOTIC [CHLORAMPHENICOL] [Concomitant]
     Indication: URINARY TRACT INFECTION

REACTIONS (1)
  - Incorrect drug administration duration [Unknown]
